FAERS Safety Report 21633104 (Version 1)
Quarter: 2022Q4

REPORT INFORMATION
  Report Type: Spontaneous
  Country: AU (occurrence: AU)
  Receive Date: 20221123
  Receipt Date: 20221123
  Transmission Date: 20230113
  Serious: Yes (Life-Threatening, Hospitalization)
  Sender: FDA-Public Use
  Company Number: AU-MYLANLABS-2022M1130296

PATIENT
  Age: 60 Year
  Sex: Female

DRUGS (3)
  1. DEXAMETHASONE [Suspect]
     Active Substance: DEXAMETHASONE
     Indication: Steroid therapy
     Dosage: 4 MILLIGRAM, TID (THRICE DAILY)
     Route: 065
  2. DEXAMETHASONE [Suspect]
     Active Substance: DEXAMETHASONE
     Indication: B precursor type acute leukaemia
  3. IDARUBICIN [Suspect]
     Active Substance: IDARUBICIN
     Indication: Acute biphenotypic leukaemia
     Dosage: UNK (7 + 3 INDUCTION CHEMOTHERAPY)
     Route: 065

REACTIONS (6)
  - Pulmonary sepsis [Unknown]
  - Colitis [Unknown]
  - Cholecystitis acute [Unknown]
  - Therapy partial responder [Unknown]
  - Lineage switch leukaemia [Unknown]
  - Acute biphenotypic leukaemia [Unknown]
